FAERS Safety Report 15374720 (Version 2)
Quarter: 2018Q3

REPORT INFORMATION
  Report Type: Spontaneous
  Country: PL (occurrence: PL)
  Receive Date: 20180912
  Receipt Date: 20180917
  Transmission Date: 20181010
  Serious: Yes (Hospitalization)
  Sender: FDA-Public Use
  Company Number: PL-MYLANLABS-2018M1066892

PATIENT
  Age: 46 Year
  Sex: Female

DRUGS (3)
  1. METFORMIN [Suspect]
     Active Substance: METFORMIN HYDROCHLORIDE
     Indication: HYPERGLYCAEMIA
     Dosage: UNK
  2. EUTHYROX [Concomitant]
     Active Substance: LEVOTHYROXINE SODIUM
     Indication: AUTOIMMUNE THYROIDITIS
     Dosage: 50 ?G/DAY FOR MORE THAN 5 YEARS
  3. GLICLAZIDE [Suspect]
     Active Substance: GLICLAZIDE
     Indication: HYPERGLYCAEMIA
     Dosage: UNK

REACTIONS (1)
  - Drug effect incomplete [Unknown]
